FAERS Safety Report 4621178-0 (Version None)
Quarter: 2005Q1

REPORT INFORMATION
  Report Type: 
  Country: None (occurrence: None)
  Receive Date: 20050328
  Receipt Date: 20050314
  Transmission Date: 20050727
  Serious: Yes (Disabling, Other)
  Sender: FDA-Public Use
  Company Number: 2005044880

PATIENT
  Sex: Female

DRUGS (1)
  1. CELEBREX [Suspect]
     Indication: OSTEOARTHRITIS
     Dosage: ORAL
     Route: 048
     Dates: start: 20041001, end: 20041001

REACTIONS (7)
  - ABASIA [None]
  - BLISTER [None]
  - ERYTHEMA [None]
  - RASH PAPULAR [None]
  - RASH PUSTULAR [None]
  - SKIN FISSURES [None]
  - SKIN LESION [None]
